FAERS Safety Report 9963905 (Version 2)
Quarter: 2014Q1

REPORT INFORMATION
  Report Type: Spontaneous
  Country: FR (occurrence: FR)
  Receive Date: 20140305
  Receipt Date: 20140311
  Transmission Date: 20141002
  Serious: Yes (Other)
  Sender: FDA-Public Use
  Company Number: PHHY2014FR024797

PATIENT
  Age: 63 Year
  Sex: Male

DRUGS (1)
  1. SPIRAMYCINE/METRONIDAZOLE G GAM [Suspect]
     Indication: TOOTH INFECTION
     Dosage: 1 DF, ONCE/SINGLE
     Route: 048
     Dates: start: 20090423, end: 20090423

REACTIONS (2)
  - Laryngeal oedema [Recovered/Resolved]
  - Urticaria [Recovered/Resolved]
